FAERS Safety Report 13020742 (Version 1)
Quarter: 2016Q4

REPORT INFORMATION
  Report Type: Report from Study
  Country: US (occurrence: US)
  Receive Date: 20161212
  Receipt Date: 20161212
  Transmission Date: 20170207
  Serious: Yes (Hospitalization)
  Sender: FDA-Public Use
  Company Number: US-009507513-1612USA004343

PATIENT
  Age: 69 Year
  Sex: Male

DRUGS (1)
  1. KEYTRUDA [Suspect]
     Active Substance: PEMBROLIZUMAB
     Dosage: 200 MG, EVERY 2 WEEKS
     Route: 042
     Dates: start: 201607, end: 201608

REACTIONS (2)
  - Drug prescribing error [Unknown]
  - Adverse event [Unknown]

NARRATIVE: CASE EVENT DATE: 201607
